FAERS Safety Report 12309695 (Version 3)
Quarter: 2016Q2

REPORT INFORMATION
  Report Type: Spontaneous
  Country: FR (occurrence: FR)
  Receive Date: 20160427
  Receipt Date: 20160601
  Transmission Date: 20160815
  Serious: Yes (Hospitalization)
  Sender: FDA-Public Use
  Company Number: FR-ABBVIE-16P-056-1612747-00

PATIENT
  Age: 35 Year
  Sex: Female

DRUGS (7)
  1. NORVIR [Suspect]
     Active Substance: RITONAVIR
     Indication: HIV INFECTION
     Route: 048
     Dates: start: 2013
  2. DELURSAN [Suspect]
     Active Substance: URSODIOL
     Indication: CROHN^S DISEASE
     Route: 048
  3. TOBRADEX [Suspect]
     Active Substance: DEXAMETHASONE\TOBRAMYCIN
     Indication: CATARACT OPERATION
     Route: 047
     Dates: start: 20160122
  4. PENTASA [Suspect]
     Active Substance: MESALAMINE
     Indication: CROHN^S DISEASE
     Route: 048
     Dates: start: 2012
  5. INDOCOLLYRE [Suspect]
     Active Substance: INDOMETHACIN
     Indication: CATARACT OPERATION
     Route: 047
     Dates: start: 20160122
  6. TRUVADA [Suspect]
     Active Substance: EMTRICITABINE\TENOFOVIR DISOPROXIL FUMARATE
     Indication: HIV INFECTION
     Dosage: 200MG/245MG
     Route: 048
     Dates: start: 2013
  7. PREZISTA [Suspect]
     Active Substance: DARUNAVIR ETHANOLATE
     Indication: HIV INFECTION
     Route: 048
     Dates: start: 2013

REACTIONS (11)
  - Papilloedema [Not Recovered/Not Resolved]
  - Microangiopathy [Not Recovered/Not Resolved]
  - White matter lesion [Unknown]
  - Pulmonary mass [Unknown]
  - Visual acuity reduced [Unknown]
  - Uveitis [Not Recovered/Not Resolved]
  - Metamorphopsia [Unknown]
  - Ocular hypertension [Unknown]
  - Retinal vasculitis [Not Recovered/Not Resolved]
  - Cataract [Unknown]
  - Hospitalisation [Unknown]

NARRATIVE: CASE EVENT DATE: 201601
